FAERS Safety Report 5869589-X (Version None)
Quarter: 2008Q3

REPORT INFORMATION
  Report Type: 
  Country: None (occurrence: None)
  Receive Date: 20080904
  Receipt Date: 20070913
  Transmission Date: 20090109
  Serious: No
  Sender: FDA-Public Use
  Company Number: US-KINGPHARMUSA00001-K200701183

PATIENT

DRUGS (2)
  1. CYTOMEL [Suspect]
     Indication: THYROID DISORDER
     Dosage: 50 MCG, QD
     Route: 048
     Dates: start: 20040101, end: 20070701
  2. CYTOMEL [Suspect]
     Dosage: 62.5 MCG, QD
     Route: 048
     Dates: start: 20070701

REACTIONS (7)
  - ANXIETY [None]
  - BLOOD THYROID STIMULATING HORMONE ABNORMAL [None]
  - EAR INFECTION [None]
  - OEDEMA PERIPHERAL [None]
  - RASH ERYTHEMATOUS [None]
  - RASH PRURITIC [None]
  - URTICARIA [None]
